FAERS Safety Report 15762087 (Version 2)
Quarter: 2019Q1

REPORT INFORMATION
  Report Type: Spontaneous
  Country: US (occurrence: US)
  Receive Date: 20181226
  Receipt Date: 20190117
  Transmission Date: 20190417
  Serious: No
  Sender: FDA-Public Use
  Company Number: US-PFIZER INC-2018527309

PATIENT
  Age: 58 Year
  Sex: Female

DRUGS (1)
  1. LYRICA [Suspect]
     Active Substance: PREGABALIN
     Indication: PAIN
     Dosage: 300 MG, DAILY (TAKE 1 TAB BY MOUTH EVERY MORNING. TAKE 2 TABS EVERY BEDTIME)
     Route: 048

REACTIONS (1)
  - Drug hypersensitivity [Unknown]
